FAERS Safety Report 24290263 (Version 1)
Quarter: 2024Q3

REPORT INFORMATION
  Report Type: Spontaneous
  Country: US (occurrence: None)
  Receive Date: 20240905
  Receipt Date: 20240905
  Transmission Date: 20241017
  Serious: No
  Sender: Public
  Company Number: None

PATIENT
  Age: 37 Year
  Sex: Male
  Weight: 82.55 kg

DRUGS (1)
  1. COSENTYX [Suspect]
     Active Substance: SECUKINUMAB
     Indication: Psoriatic arthropathy
     Dosage: OTHER QUANTITY : 300MG (2 PENS);?FREQUENCY : AS DIRECTED;?
     Route: 058
     Dates: start: 202408

REACTIONS (4)
  - Therapy interrupted [None]
  - Infection [None]
  - Rash [None]
  - Nonspecific reaction [None]
